FAERS Safety Report 18136235 (Version 1)
Quarter: 2020Q3

REPORT INFORMATION
  Report Type: Report from Study
  Country: US (occurrence: US)
  Receive Date: 20200811
  Receipt Date: 20200811
  Transmission Date: 20201103
  Serious: Yes (Hospitalization, Other)
  Sender: FDA-Public Use
  Company Number: US-EXELIXIS-CABO-20031858

PATIENT
  Age: 70 Year
  Sex: Male

DRUGS (20)
  1. FENTANYL. [Concomitant]
     Active Substance: FENTANYL
  2. APAP [Concomitant]
     Active Substance: ACETAMINOPHEN
  3. HYDROMORPHONE [Concomitant]
     Active Substance: HYDROMORPHONE
  4. MORPHINE SULF [Concomitant]
     Active Substance: MORPHINE SULFATE
  5. JANUMET [Concomitant]
     Active Substance: METFORMIN HYDROCHLORIDE\SITAGLIPTIN PHOSPHATE
  6. METHYLPREDNISOLONE. [Concomitant]
     Active Substance: METHYLPREDNISOLONE
  7. HYDROCHLOROTHIAZIDE. [Concomitant]
     Active Substance: HYDROCHLOROTHIAZIDE
  8. MONTELUKAST [Concomitant]
     Active Substance: MONTELUKAST SODIUM
  9. TOUJEO [Concomitant]
     Active Substance: INSULIN GLARGINE
  10. ALBUTEROL. [Concomitant]
     Active Substance: ALBUTEROL
  11. AMMONIUM LACTATE. [Concomitant]
     Active Substance: AMMONIUM LACTATE
  12. GABAPENTIN. [Concomitant]
     Active Substance: GABAPENTIN
  13. BENZONATATE. [Concomitant]
     Active Substance: BENZONATATE
  14. NEOMYCIN/POLYMYXIN/HYDROCORTISONE AIDAREX [Concomitant]
  15. PREDNISOLONE. [Concomitant]
     Active Substance: PREDNISOLONE
  16. CABOMETYX [Suspect]
     Active Substance: CABOZANTINIB S-MALATE
     Indication: PROSTATE CANCER
     Dosage: 40 MG, QD
     Route: 048
     Dates: start: 20200617, end: 20200718
  17. LOSARTAN POTASSIUM. [Concomitant]
     Active Substance: LOSARTAN POTASSIUM
  18. FLUTICASONE. [Concomitant]
     Active Substance: FLUTICASONE
  19. ONDANSETRON [Concomitant]
     Active Substance: ONDANSETRON
  20. PANTOPRAZOLE [Concomitant]
     Active Substance: PANTOPRAZOLE

REACTIONS (3)
  - Cerebral thrombosis [Unknown]
  - Back disorder [Unknown]
  - Off label use [Unknown]

NARRATIVE: CASE EVENT DATE: 20200718
